FAERS Safety Report 7594244-8 (Version None)
Quarter: 2011Q3

REPORT INFORMATION
  Report Type: 
  Country: None (occurrence: None)
  Receive Date: 20110706
  Receipt Date: 20110706
  Transmission Date: 20111222
  Serious: Yes (Other)
  Sender: FDA-Public Use
  Company Number: None

PATIENT
  Age: 61 Year
  Sex: Male
  Weight: 83.914 kg

DRUGS (1)
  1. VARENICLINE [Suspect]
     Indication: SMOKING CESSATION THERAPY
     Dosage: 1MG
     Route: 048
     Dates: start: 20080201, end: 20080301

REACTIONS (2)
  - BUNDLE BRANCH BLOCK RIGHT [None]
  - MENISCUS LESION [None]
